FAERS Safety Report 14619448 (Version 1)
Quarter: 2018Q1

REPORT INFORMATION
  Report Type: Spontaneous
  Country: CA (occurrence: CA)
  Receive Date: 20180309
  Receipt Date: 20180309
  Transmission Date: 20180509
  Serious: Yes (Other)
  Sender: FDA-Public Use
  Company Number: CA-PFIZER INC-2018089176

PATIENT
  Age: 49 Year
  Sex: Female

DRUGS (6)
  1. TYLENOL [Concomitant]
     Active Substance: ACETAMINOPHEN
     Dosage: UNK UNK, AS NEEDED
  2. LORAZEPAM. [Suspect]
     Active Substance: LORAZEPAM
     Indication: ANXIETY
     Dosage: 4 MG, DAILY
  3. BUDESONIDE. [Concomitant]
     Active Substance: BUDESONIDE
     Indication: CROHN^S DISEASE
     Dosage: 3 MG, DAILY - BEING WEANED TO 1 TAB A MONTH
     Dates: start: 20180205
  4. AMITRIPTYLINE /00002202/ [Concomitant]
     Active Substance: AMITRIPTYLINE
     Indication: INSOMNIA
     Dosage: 10 MG, UNK
  5. AZATHIOPRINE. [Concomitant]
     Active Substance: AZATHIOPRINE
     Dosage: 15 MG, DAILY
     Dates: start: 2006
  6. BUDESONIDE. [Concomitant]
     Active Substance: BUDESONIDE
     Dosage: 9 UNK, UNK
     Route: 048

REACTIONS (5)
  - Colitis [Not Recovered/Not Resolved]
  - Gastrooesophageal reflux disease [Unknown]
  - Crohn^s disease [Not Recovered/Not Resolved]
  - Condition aggravated [Not Recovered/Not Resolved]
  - Gluten sensitivity [Unknown]
